FAERS Safety Report 16306502 (Version 3)
Quarter: 2020Q4

REPORT INFORMATION
  Report Type: Spontaneous
  Country: US (occurrence: US)
  Receive Date: 20190513
  Receipt Date: 20201208
  Transmission Date: 20210113
  Serious: Yes (Hospitalization, Other)
  Sender: FDA-Public Use
  Company Number: US-ASTRAZENECA-2019SE64153

PATIENT
  Age: 67 Year
  Sex: Male
  Weight: 83.9 kg

DRUGS (49)
  1. PREVACID [Suspect]
     Active Substance: LANSOPRAZOLE
     Indication: GASTROOESOPHAGEAL REFLUX DISEASE
     Route: 065
     Dates: start: 199501, end: 201812
  2. HYDROCODONE-ACETAMINOPHEN [Concomitant]
     Active Substance: ACETAMINOPHEN\HYDROCODONE
     Indication: PAIN
     Dates: start: 2009
  3. ATORVASTATIN [Concomitant]
     Active Substance: ATORVASTATIN
     Indication: BLOOD CHOLESTEROL INCREASED
     Dates: start: 2014
  4. ALLER-TEC [Concomitant]
     Active Substance: CETIRIZINE HYDROCHLORIDE
     Indication: MULTIPLE ALLERGIES
     Dates: start: 1999
  5. ISOSORBIDE MONONITRATE. [Concomitant]
     Active Substance: ISOSORBIDE MONONITRATE
  6. METOPROLOL TARTRATE. [Concomitant]
     Active Substance: METOPROLOL TARTRATE
  7. CLOPIDOGREL [Concomitant]
     Active Substance: CLOPIDOGREL BISULFATE
  8. FOLIC ACID. [Concomitant]
     Active Substance: FOLIC ACID
     Indication: GENERAL PHYSICAL HEALTH DETERIORATION
     Dates: start: 2016
  9. ROLAIDS [Concomitant]
     Active Substance: CALCIUM CARBONATE\MAGNESIUM HYDROXIDE
     Dosage: 2 TABLET DAILT
     Dates: start: 2001
  10. FOLIC ACID. [Concomitant]
     Active Substance: FOLIC ACID
  11. ONGLYZA [Concomitant]
     Active Substance: SAXAGLIPTIN HYDROCHLORIDE
  12. ZYRTEC [Concomitant]
     Active Substance: CETIRIZINE HYDROCHLORIDE
  13. PREDNISONE. [Concomitant]
     Active Substance: PREDNISONE
  14. AMOX-CLAV [Concomitant]
     Active Substance: AMOXICILLIN\CLAVULANATE POTASSIUM
  15. PROAIR HFA [Concomitant]
     Active Substance: ALBUTEROL SULFATE
  16. LIDOCAINE. [Concomitant]
     Active Substance: LIDOCAINE
  17. NAPROXEN. [Concomitant]
     Active Substance: NAPROXEN
  18. COLCHICINE. [Concomitant]
     Active Substance: COLCHICINE
  19. PRILOSEC OTC [Suspect]
     Active Substance: OMEPRAZOLE MAGNESIUM
     Indication: GASTROOESOPHAGEAL REFLUX DISEASE
     Route: 048
     Dates: start: 199501, end: 201812
  20. ZEGERID [Suspect]
     Active Substance: OMEPRAZOLE\SODIUM BICARBONATE
     Indication: GASTROOESOPHAGEAL REFLUX DISEASE
     Dosage: GENERIC
     Route: 065
     Dates: start: 2009, end: 2014
  21. ISOSORBIDE. [Concomitant]
     Active Substance: ISOSORBIDE
     Indication: CHEST PAIN
     Dates: start: 2009
  22. PREDNISONE. [Concomitant]
     Active Substance: PREDNISONE
     Indication: INFLAMMATION
     Dates: start: 20190101
  23. VITAMIN B12 [Concomitant]
     Active Substance: CYANOCOBALAMIN
     Indication: GENERAL PHYSICAL HEALTH DETERIORATION
     Dates: start: 2016
  24. ZANTAC [Concomitant]
     Active Substance: RANITIDINE HYDROCHLORIDE
     Dates: start: 2010
  25. TUMS [Concomitant]
     Active Substance: CALCIUM CARBONATE
     Dosage: 2 TABLET DAILT
     Dates: start: 1993
  26. ATORVASTATIN CALCIUM. [Concomitant]
     Active Substance: ATORVASTATIN CALCIUM
  27. TOBRAMYCIN. [Concomitant]
     Active Substance: TOBRAMYCIN
  28. CLINDAMYCIN. [Concomitant]
     Active Substance: CLINDAMYCIN
  29. NEXIUM [Suspect]
     Active Substance: ESOMEPRAZOLE MAGNESIUM
     Indication: GASTROOESOPHAGEAL REFLUX DISEASE
     Route: 048
     Dates: start: 199501, end: 201812
  30. PRILOSEC [Suspect]
     Active Substance: OMEPRAZOLE MAGNESIUM
     Indication: GASTROOESOPHAGEAL REFLUX DISEASE
     Route: 048
     Dates: start: 199501, end: 201812
  31. PRILOSEC [Suspect]
     Active Substance: OMEPRAZOLE MAGNESIUM
     Indication: GASTROOESOPHAGEAL REFLUX DISEASE
     Route: 048
     Dates: start: 1995, end: 2018
  32. PROMETHAZINE [Concomitant]
     Active Substance: PROMETHAZINE HYDROCHLORIDE
  33. PRILOSEC OTC [Suspect]
     Active Substance: OMEPRAZOLE MAGNESIUM
     Indication: GASTROOESOPHAGEAL REFLUX DISEASE
     Route: 048
     Dates: start: 2009, end: 2014
  34. METOPROLOL. [Concomitant]
     Active Substance: METOPROLOL
     Indication: HYPERTENSION
     Dates: start: 2009
  35. LISINOPRIL. [Concomitant]
     Active Substance: LISINOPRIL
     Indication: HYPERTENSION
     Dates: start: 2014
  36. METHYLPREDNISOLONE. [Concomitant]
     Active Substance: METHYLPREDNISOLONE
  37. FAMOTIDINE. [Concomitant]
     Active Substance: FAMOTIDINE
     Dosage: GENERIC
     Dates: start: 2018
  38. CLOPIDOGREL BISULFATE. [Concomitant]
     Active Substance: CLOPIDOGREL BISULFATE
  39. PREVACID [Suspect]
     Active Substance: LANSOPRAZOLE
     Indication: GASTROOESOPHAGEAL REFLUX DISEASE
     Route: 065
     Dates: start: 1995, end: 2014
  40. ALOGLIPTIN. [Concomitant]
     Active Substance: ALOGLIPTIN
     Indication: DIABETES MELLITUS
     Dates: start: 2009
  41. PLAQUENIL [Concomitant]
     Active Substance: HYDROXYCHLOROQUINE SULFATE
     Indication: ARTHRITIS
     Dates: start: 20190101
  42. FLUTICASONE PROPIONATE. [Concomitant]
     Active Substance: FLUTICASONE PROPIONATE
  43. LISINOPRIL. [Concomitant]
     Active Substance: LISINOPRIL
  44. OXYCODONE [Concomitant]
     Active Substance: OXYCODONE
  45. NEXIUM [Suspect]
     Active Substance: ESOMEPRAZOLE MAGNESIUM
     Indication: GASTROOESOPHAGEAL REFLUX DISEASE
     Dosage: GENERIC
     Route: 065
     Dates: start: 201404, end: 2018
  46. ASPIRIN. [Concomitant]
     Active Substance: ASPIRIN
     Indication: CARDIAC DISORDER
     Dates: start: 2010
  47. VITAMIN D [Concomitant]
     Active Substance: VITAMIN D NOS
     Indication: GENERAL PHYSICAL HEALTH DETERIORATION
     Dates: start: 2016
  48. COLCHICINE. [Concomitant]
     Active Substance: COLCHICINE
  49. NITROSTAT [Concomitant]
     Active Substance: NITROGLYCERIN

REACTIONS (3)
  - Acute kidney injury [Unknown]
  - Renal failure [Unknown]
  - Chronic kidney disease [Not Recovered/Not Resolved]

NARRATIVE: CASE EVENT DATE: 2009
